FAERS Safety Report 7933526-4 (Version None)
Quarter: 2011Q4

REPORT INFORMATION
  Report Type: 
  Country: None (occurrence: None)
  Receive Date: 20111118
  Receipt Date: 20111114
  Transmission Date: 20120403
  Serious: Yes (Other)
  Sender: FDA-Public Use
  Company Number: A0952996A

PATIENT
  Age: 58 Year
  Sex: Female

DRUGS (1)
  1. CALCIUM CARBONATE [Suspect]
     Indication: HYPERCHLORHYDRIA

REACTIONS (2)
  - DEPENDENCE [None]
  - DRUG ADMINISTRATION ERROR [None]
